FAERS Safety Report 7935887-9 (Version None)
Quarter: 2011Q4

REPORT INFORMATION
  Report Type: 
  Country: None (occurrence: None)
  Receive Date: 20111123
  Receipt Date: 20111117
  Transmission Date: 20120403
  Serious: Yes (Hospitalization, Other)
  Sender: FDA-Public Use
  Company Number: US-BAYER-2011-092272

PATIENT
  Age: 74 Year
  Sex: Female

DRUGS (4)
  1. NEXAVAR [Suspect]
     Dosage: 400 MG, BID (2 IN AM AND 2 IN PM)
     Dates: start: 20111013
  2. LACTULOSE [Concomitant]
  3. NEXAVAR [Suspect]
     Dosage: 200 MG, BID
  4. NEXAVAR [Suspect]
     Indication: HEPATIC NEOPLASM MALIGNANT
     Dosage: 400 MG, BID
     Dates: start: 20110924

REACTIONS (11)
  - ASTHENIA [None]
  - DEPRESSION [None]
  - AMMONIA INCREASED [None]
  - SLOW SPEECH [None]
  - SPEECH DISORDER [None]
  - DISORIENTATION [None]
  - PAIN IN EXTREMITY [None]
  - DEPRESSED MOOD [None]
  - NAUSEA [None]
  - OROPHARYNGEAL PAIN [None]
  - BLOOD PRESSURE INCREASED [None]
